FAERS Safety Report 6587278 (Version 2)
Quarter: 2017Q3

REPORT INFORMATION
  Report Type: Spontaneous
  Country: US (occurrence: US)
  Receive Date: 20080318
  Receipt Date: 20170824
  Transmission Date: 20171128
  Serious: Yes (Other)
  Sender: FDA-Public Use
  Company Number: US-PFIZER INC-2008021889

PATIENT
  Age: 27 Year
  Sex: Female
  Weight: 72.73 kg

DRUGS (1)
  1. CYTOTEC [Suspect]
     Active Substance: MISOPROSTOL
     Indication: UTERINE CERVIX DILATION PROCEDURE
     Dosage: 400 UG (2 TABLETS OF 200 UG), UNK
     Route: 067
     Dates: start: 20080304

REACTIONS (3)
  - Haemorrhage [Unknown]
  - Intentional product misuse [Unknown]
  - Muscle spasms [Unknown]

NARRATIVE: CASE EVENT DATE: 20080304
